FAERS Safety Report 12742214 (Version 1)
Quarter: 2016Q3

REPORT INFORMATION
  Report Type: Spontaneous
  Country: FR (occurrence: FR)
  Receive Date: 20160914
  Receipt Date: 20160914
  Transmission Date: 20161109
  Serious: Yes (Hospitalization, Other)
  Sender: FDA-Public Use
  Company Number: FR-IPSEN BIOPHARMACEUTICALS, INC.-2016-07316

PATIENT
  Age: 72 Year
  Sex: Male

DRUGS (8)
  1. APROVEL [Concomitant]
     Active Substance: IRBESARTAN
  2. DYSPORT [Suspect]
     Active Substance: ABOBOTULINUMTOXINA
     Indication: PRODUCT USE ISSUE
  3. KARDEGIC [Concomitant]
     Active Substance: ASPIRIN LYSINE
  4. INEXIUM [Concomitant]
     Active Substance: ESOMEPRAZOLE
  5. DYSPORT [Suspect]
     Active Substance: ABOBOTULINUMTOXINA
     Indication: MUSCLE SPASTICITY
     Dosage: 500 IU
     Route: 030
     Dates: start: 20160704, end: 20160704
  6. TAHOR [Concomitant]
     Active Substance: ATORVASTATIN CALCIUM
  7. VOLTARENE [Concomitant]
     Active Substance: DICLOFENAC SODIUM
  8. AMLOR [Concomitant]
     Active Substance: AMLODIPINE BESYLATE

REACTIONS (14)
  - Hemiparesis [Recovered/Resolved]
  - Gait disturbance [Recovered/Resolved]
  - Dysarthria [Unknown]
  - Hypertonia [Unknown]
  - Dysstasia [Recovered/Resolved]
  - Bradykinesia [Unknown]
  - Product preparation error [Unknown]
  - Drug effect decreased [Unknown]
  - Condition aggravated [Recovered/Resolved]
  - Balance disorder [Unknown]
  - Ischaemic stroke [Unknown]
  - Microcytic anaemia [Unknown]
  - Extrapyramidal disorder [Unknown]
  - Iron deficiency [Unknown]

NARRATIVE: CASE EVENT DATE: 201608
